FAERS Safety Report 7619071-4 (Version None)
Quarter: 2011Q3

REPORT INFORMATION
  Report Type: 
  Country: None (occurrence: None)
  Receive Date: 20110718
  Receipt Date: 20110708
  Transmission Date: 20111222
  Serious: Yes (Hospitalization)
  Sender: FDA-Public Use
  Company Number: CA-ASTRAZENECA-2011SE40853

PATIENT

DRUGS (2)
  1. CLARITHROMYCIN [Concomitant]
  2. SEROQUEL XR [Suspect]
     Route: 048

REACTIONS (2)
  - HEPATIC ENZYME INCREASED [None]
  - BLOOD CREATINE PHOSPHOKINASE INCREASED [None]
